FAERS Safety Report 12294041 (Version 2)
Quarter: 2016Q2

REPORT INFORMATION
  Report Type: Report from Study
  Country: FR (occurrence: FR)
  Receive Date: 20160422
  Receipt Date: 20160510
  Transmission Date: 20160815
  Serious: Yes (Hospitalization)
  Sender: FDA-Public Use
  Company Number: FR-ROCHE-1731554

PATIENT
  Age: 66 Year
  Sex: Male
  Weight: 95.8 kg

DRUGS (14)
  1. PARACETAMOL [Concomitant]
     Active Substance: ACETAMINOPHEN
     Indication: PREMEDICATION
     Route: 065
     Dates: start: 20160111
  2. PARACETAMOL [Concomitant]
     Active Substance: ACETAMINOPHEN
     Route: 065
     Dates: start: 20160324, end: 20160331
  3. SODIUM POLYSTYRENE SULFONATE. [Concomitant]
     Active Substance: SODIUM POLYSTYRENE SULFONATE
     Indication: RENAL FAILURE
     Route: 065
     Dates: start: 20160325, end: 20160329
  4. LENALIDOMIDE [Suspect]
     Active Substance: LENALIDOMIDE
     Indication: DIFFUSE LARGE B-CELL LYMPHOMA
     Dosage: DATE OF LAST DOSE PRIOR TO HEPATIC CHOLESTASIS: 22/MAR/2016.?DATE OF LAST DOSE PRIOR TO ANICTERIC CH
     Route: 065
     Dates: start: 20160104, end: 20160408
  5. OMEPRAZOLE. [Concomitant]
     Active Substance: OMEPRAZOLE
     Route: 065
     Dates: start: 20160112
  6. DEXCHLORPHENIRAMINE [Concomitant]
     Active Substance: DEXCHLORPHENIRAMINE
     Indication: PREMEDICATION
     Route: 065
     Dates: start: 20160111
  7. HYDROXYZINE [Concomitant]
     Active Substance: HYDROXYZINE\HYDROXYZINE HYDROCHLORIDE
     Indication: ERYTHEMA
     Route: 065
     Dates: start: 20160302
  8. OBINUTUZUMAB [Suspect]
     Active Substance: OBINUTUZUMAB
     Indication: DIFFUSE LARGE B-CELL LYMPHOMA
     Dosage: DATE OF LAST DOSE PRIOR TO HEPATIC CHOLESTASIS: 02/MAR/2016.?DATE OF LAST DOSE PRIOR TO ANICTERIC CH
     Route: 065
     Dates: start: 20160111
  9. ALLOPURINOL. [Concomitant]
     Active Substance: ALLOPURINOL
     Indication: HYPERURICAEMIA
     Route: 065
     Dates: start: 20160125, end: 20160208
  10. INSULIN [Concomitant]
     Active Substance: INSULIN NOS
     Indication: DIABETES MELLITUS
     Route: 065
     Dates: start: 20160323, end: 20160331
  11. PANTOPRAZOLE [Concomitant]
     Active Substance: PANTOPRAZOLE SODIUM
     Indication: OESOPHAGITIS
     Route: 065
     Dates: start: 20160323, end: 20160331
  12. PREDNISOLONE. [Concomitant]
     Active Substance: PREDNISOLONE
     Indication: PREMEDICATION
     Route: 065
     Dates: start: 20160111, end: 20160111
  13. BETAMETHASONE. [Concomitant]
     Active Substance: BETAMETHASONE
     Indication: ERYTHEMA
     Route: 065
     Dates: start: 20160302
  14. SODIUM BICARBONATE. [Concomitant]
     Active Substance: SODIUM BICARBONATE
     Indication: OESOPHAGITIS
     Route: 065
     Dates: start: 20160323, end: 20160401

REACTIONS (2)
  - Hepatocellular injury [Recovered/Resolved with Sequelae]
  - Acute kidney injury [Recovered/Resolved]

NARRATIVE: CASE EVENT DATE: 20160323
